FAERS Safety Report 10560024 (Version 1)
Quarter: 2014Q4

REPORT INFORMATION
  Report Type: Spontaneous
  Country: US (occurrence: None)
  Receive Date: 20141031
  Receipt Date: 20141031
  Transmission Date: 20150529
  Serious: Yes (Disabling)
  Sender: FDA-Public Use
  Company Number: None

PATIENT
  Age: 38 Year
  Sex: Female
  Weight: 77.11 kg

DRUGS (2)
  1. LORAZEPAM .5MG WATSON [Suspect]
     Active Substance: LORAZEPAM
     Indication: ANXIETY
     Dosage: 30 TABS, TWICE DAILY, TAKEN BY MOUTH
     Route: 048
  2. LORAZEPAM .5MG WATSON [Suspect]
     Active Substance: LORAZEPAM
     Indication: PANIC ATTACK
     Dosage: 30 TABS, TWICE DAILY, TAKEN BY MOUTH
     Route: 048

REACTIONS (5)
  - Paraesthesia [None]
  - Drug withdrawal syndrome [None]
  - Palpitations [None]
  - Insomnia [None]
  - Muscle twitching [None]
